FAERS Safety Report 10118722 (Version 3)
Quarter: 2014Q2

REPORT INFORMATION
  Report Type: Spontaneous
  Country: US (occurrence: US)
  Receive Date: 20140426
  Receipt Date: 20140512
  Transmission Date: 20141212
  Serious: Yes (Other)
  Sender: FDA-Public Use
  Company Number: US-MERCK-1404USA012005

PATIENT
  Age: 62 Year
  Sex: Male

DRUGS (6)
  1. PEGINTRON [Suspect]
     Indication: HEPATITIS C
     Dosage: 0.5 ML ONE DOSE
     Route: 058
     Dates: start: 20140113
  2. REBETOL [Suspect]
     Dosage: UNK
     Route: 048
  3. VICTRELIS [Suspect]
     Dosage: UNK
     Route: 048
  4. VITAMIN D (UNSPECIFIED) [Concomitant]
     Dosage: UNK
  5. BASICS WATER PILLS [Concomitant]
     Dosage: UNK
  6. OMEPRAZOLE [Concomitant]
     Dosage: UNK
     Route: 048

REACTIONS (19)
  - Loss of consciousness [Recovered/Resolved]
  - Loss of consciousness [Recovered/Resolved]
  - Loss of consciousness [Recovered/Resolved]
  - Syncope [Recovered/Resolved]
  - Syncope [Recovered/Resolved]
  - Syncope [Recovered/Resolved]
  - Haemoglobin decreased [Unknown]
  - Fall [Unknown]
  - Head injury [Unknown]
  - Chest injury [Unknown]
  - Heart rate decreased [Unknown]
  - Influenza like illness [Recovered/Resolved]
  - Rash [Recovered/Resolved]
  - Pruritus [Recovered/Resolved]
  - Dizziness [Unknown]
  - Pneumonia [Recovered/Resolved]
  - Drug dose omission [Unknown]
  - Product quality issue [Unknown]
  - Contusion [Unknown]
